FAERS Safety Report 17422747 (Version 1)
Quarter: 2020Q1

REPORT INFORMATION
  Report Type: Spontaneous
  Country: JP (occurrence: JP)
  Receive Date: 20200215
  Receipt Date: 20200215
  Transmission Date: 20200409
  Serious: Yes (Hospitalization)
  Sender: FDA-Public Use
  Company Number: JP-VISTAPHARM, INC.-VER202002-000269

PATIENT
  Age: 60 Year
  Sex: Female
  Weight: 52 kg

DRUGS (4)
  1. PREDNISOLONE. [Suspect]
     Active Substance: PREDNISOLONE
     Indication: RHEUMATOID ARTHRITIS
     Dosage: 3 MG/DAY
  2. PROPOFOL. [Concomitant]
     Active Substance: PROPOFOL
     Indication: ANAESTHESIA
     Dosage: 120 MG AT 9 A.M
  3. DESFLURANE. [Concomitant]
     Active Substance: DESFLURANE
     Indication: ANAESTHESIA
  4. FENTANYL. [Concomitant]
     Active Substance: FENTANYL
     Indication: ANAESTHESIA
     Dosage: 100 MCG AT 9 A.M

REACTIONS (1)
  - Procedural hypotension [Recovered/Resolved]
